FAERS Safety Report 6730319-0 (Version None)
Quarter: 2010Q2

REPORT INFORMATION
  Report Type: 
  Country: None (occurrence: None)
  Receive Date: 20100518
  Receipt Date: 20100507
  Transmission Date: 20101027
  Serious: Yes (Hospitalization)
  Sender: FDA-Public Use
  Company Number: JP-ROCHE-703236

PATIENT
  Sex: Female
  Weight: 54 kg

DRUGS (17)
  1. TOCILIZUMAB [Suspect]
     Indication: RHEUMATOID ARTHRITIS
     Dosage: THERAPY DURATION: 7 DAYS
     Route: 041
     Dates: start: 20090716, end: 20090716
  2. TOCILIZUMAB [Suspect]
     Route: 041
     Dates: start: 20090804, end: 20090804
  3. TOCILIZUMAB [Suspect]
     Route: 041
     Dates: start: 20090902, end: 20090902
  4. TOCILIZUMAB [Suspect]
     Route: 041
     Dates: start: 20090929, end: 20090929
  5. TOCILIZUMAB [Suspect]
     Route: 041
     Dates: start: 20091027, end: 20091027
  6. TOCILIZUMAB [Suspect]
     Route: 041
     Dates: start: 20091124, end: 20091124
  7. TOCILIZUMAB [Suspect]
     Route: 041
     Dates: start: 20091222
  8. PREDNISOLONE [Concomitant]
     Dosage: DOSE FORM: PERORAL AGENT
     Route: 048
  9. LOXONIN [Concomitant]
     Dosage: LOXONIN(LOXOPROFEN SODIUM),PERORAL AGENT
     Route: 048
  10. GLORIAMIN [Concomitant]
     Dosage: GLORIAMIN(SODIUM AZULENE SULFONATE_L-GLUTAMINE), DOSE FORM:GRANULATED POWDER
     Route: 048
  11. BUFFERIN [Concomitant]
     Dosage: BUFFERIN 81MG(ASPIRIN_DIALUMINATE)
     Route: 048
  12. MAINTATE [Concomitant]
     Dosage: MAINTATE(BISOPROLOL FUMARATE)
     Route: 048
  13. NATRILIX [Concomitant]
     Dosage: NATRIX(INDAPAMIDE)
     Route: 048
  14. OLMESARTAN MEDOXOMIL [Concomitant]
     Route: 048
  15. TAKEPRON [Concomitant]
     Route: 048
  16. SELBEX [Concomitant]
     Dosage: PERORAL AGENT
     Route: 048
  17. ZETIA [Concomitant]
     Route: 048
     Dates: start: 20091223

REACTIONS (1)
  - PYELONEPHRITIS [None]
